FAERS Safety Report 4785848-6 (Version None)
Quarter: 2005Q3

REPORT INFORMATION
  Report Type: 
  Country: None (occurrence: None)
  Receive Date: 20050930
  Receipt Date: 20050919
  Transmission Date: 20060218
  Serious: Yes (Hospitalization)
  Sender: FDA-Public Use
  Company Number: 2005-132664-NL

PATIENT
  Age: 65 Year

DRUGS (13)
  1. DEXAMETHASONE [Suspect]
     Dosage: 10 MG/4 MG BID INTRAVENOUS (NOS)/ORAL
  2. DEXAMETHASONE [Suspect]
     Dosage: 10 MG/4 MG BID INTRAVENOUS (NOS)/ORAL
     Dates: start: 20050531
  3. OXALIPLATIN [Suspect]
     Dosage: 145 MG INTRAVENOUS (NOS)
     Route: 042
     Dates: start: 20050531
  4. ONDANSETRON [Suspect]
     Dosage: 8 MG BID INTRAVENOUS BOLUS/ORAL
  5. ONDANSETRON [Suspect]
     Dosage: 8 MG BID INTRAVENOUS BOLUS/ORAL
     Dates: start: 20050531
  6. FLUOROURACIL [Suspect]
     Dosage: 700 MG/4300 MG INTRAVENOUS (NOS)
     Route: 042
  7. FLUOROURACIL [Suspect]
     Dosage: 4300MG
     Route: 042
  8. DOMPERIDONE [Suspect]
     Dosage: 20 MG ORAL
     Route: 048
  9. CALCIUM GLUCONATE [Suspect]
     Dosage: 175 MG INTRAVENOUS (NOS)
     Route: 042
  10. WARFARIN SODIUM [Concomitant]
  11. OMEPRAZOLE [Concomitant]
  12. POTASSIUM CHLORIDE [Concomitant]
  13. BENDROFLUMETHIAZIDE [Concomitant]
     Indication: HYPERTENSION

REACTIONS (1)
  - CHOKING SENSATION [None]
